FAERS Safety Report 5225570-5 (Version None)
Quarter: 2007Q1

REPORT INFORMATION
  Report Type: 
  Country: None (occurrence: None)
  Receive Date: 20061201
  Receipt Date: 20061017
  Transmission Date: 20070707
  Serious: Yes (Other)
  Sender: FDA-Public Use
  Company Number: US200607003260

PATIENT
  Age: 59 Year
  Sex: Female
  Weight: 48.5 kg

DRUGS (2)
  1. CYMBALTA [Suspect]
     Indication: MAJOR DEPRESSION
     Dosage: 120 MG, DAILY (1/D)
     Dates: start: 20051219, end: 20060711
  2. PROVIGIL [Concomitant]

REACTIONS (16)
  - ANGLE CLOSURE GLAUCOMA [None]
  - DECREASED APPETITE [None]
  - DIARRHOEA [None]
  - DIZZINESS [None]
  - DRUG WITHDRAWAL SYNDROME [None]
  - HEADACHE [None]
  - HYPERHIDROSIS [None]
  - INFLUENZA [None]
  - MORBID THOUGHTS [None]
  - NAUSEA [None]
  - NIGHTMARE [None]
  - PAIN [None]
  - PARAESTHESIA [None]
  - READING DISORDER [None]
  - TINNITUS [None]
  - VOMITING [None]
